FAERS Safety Report 9332675 (Version 1)
Quarter: 2013Q2

REPORT INFORMATION
  Report Type: Other
  Country: GB (occurrence: GB)
  Receive Date: 20130606
  Receipt Date: 20130606
  Transmission Date: 20140414
  Serious: Yes (Hospitalization, Disabling, Other)
  Sender: FDA-Public Use
  Company Number: GB-PERRIGO-13GB005857

PATIENT
  Age: 53 Year
  Sex: Male
  Weight: 80 kg

DRUGS (2)
  1. IBUPROFEN 16028/0013 200 MG [Suspect]
     Indication: MUSCULOSKELETAL PAIN
     Dosage: 400 MG, TID
     Route: 048
     Dates: start: 20130508, end: 20130513
  2. RANITIDINE HYDROCHLORIDE 16028/0122 83.75 MG [Suspect]
     Indication: PROPHYLAXIS
     Dosage: 150 MG, UNK
     Route: 048
     Dates: start: 20130508, end: 20130516

REACTIONS (3)
  - Erythema multiforme [Recovering/Resolving]
  - Pain [Recovering/Resolving]
  - Pemphigoid [Recovering/Resolving]
